FAERS Safety Report 19016904 (Version 1)
Quarter: 2021Q1

REPORT INFORMATION
  Report Type: Spontaneous
  Country: US (occurrence: US)
  Receive Date: 20210316
  Receipt Date: 20210316
  Transmission Date: 20210420
  Serious: No
  Sender: FDA-Public Use
  Company Number: US-GALDERMA-US2020046470

PATIENT
  Age: 19 Year
  Sex: Female

DRUGS (5)
  1. PROACTIV MD DEEP CLEANSING FACE WASH [Concomitant]
     Active Substance: COSMETICS
     Indication: ACNE
     Route: 061
     Dates: start: 20200303, end: 20200308
  2. PROACTIV REDNESS RELIEF SERUM [Concomitant]
     Indication: ACNE
     Route: 061
     Dates: start: 20200303, end: 20200308
  3. PROACTIV DEEP CLEANSING WASH [Concomitant]
     Active Substance: SALICYLIC ACID
     Indication: ACNE
     Route: 061
     Dates: start: 20200303, end: 20200308
  4. PROACTIV MD DAILY OIL CONTROL SPF 30 [Suspect]
     Active Substance: AVOBENZONE\OCTISALATE\OCTOCRYLENE
     Indication: ACNE
     Route: 061
     Dates: start: 20200303, end: 20200308
  5. PROACTIV MD ADAPALENE ACNE TREATMENT [Suspect]
     Active Substance: ADAPALENE
     Indication: ACNE
     Dosage: 0.1%
     Route: 061
     Dates: start: 20200303, end: 20200308

REACTIONS (5)
  - Underdose [Recovered/Resolved]
  - Urticaria [Recovered/Resolved]
  - Hypersensitivity [Recovered/Resolved]
  - Inappropriate schedule of product administration [Recovered/Resolved]
  - Acne cystic [Recovered/Resolved]

NARRATIVE: CASE EVENT DATE: 20200303
